FAERS Safety Report 14055554 (Version 1)
Quarter: 2017Q4

REPORT INFORMATION
  Report Type: Report from Study
  Country: US (occurrence: US)
  Receive Date: 20171006
  Receipt Date: 20171006
  Transmission Date: 20180321
  Serious: No
  Sender: FDA-Public Use
  Company Number: US-TEVA-811646ACC

PATIENT
  Sex: Female

DRUGS (1)
  1. COPAXONE [Suspect]
     Active Substance: GLATIRAMER ACETATE
     Dosage: UNKNOWN FORM STRENGTH
     Route: 065

REACTIONS (6)
  - Dyspnoea [Unknown]
  - Body temperature decreased [Unknown]
  - Chills [Unknown]
  - Gastroenteritis viral [Unknown]
  - Influenza like illness [Unknown]
  - Drug intolerance [Unknown]
